FAERS Safety Report 7543230-2 (Version None)
Quarter: 2011Q2

REPORT INFORMATION
  Report Type: 
  Country: None (occurrence: None)
  Receive Date: 20110613
  Receipt Date: 20110607
  Transmission Date: 20111010
  Serious: Yes (Hospitalization)
  Sender: FDA-Public Use
  Company Number: IT-MERCK-1106ITA00009

PATIENT
  Age: 68 Year
  Sex: Female

DRUGS (8)
  1. COZAAR [Suspect]
     Indication: ESSENTIAL HYPERTENSION
     Route: 048
     Dates: start: 20110403, end: 20110503
  2. BISOPROLOL FUMARATE [Concomitant]
     Route: 048
  3. ASPIRIN [Concomitant]
     Route: 048
  4. RAMIPRIL [Suspect]
     Indication: CARDIAC FAILURE
     Route: 048
     Dates: start: 20110403, end: 20110503
  5. FUROSEMIDE SODIUM [Suspect]
     Indication: ESSENTIAL HYPERTENSION
     Route: 048
     Dates: start: 20110403, end: 20110503
  6. SIMVASTATIN [Concomitant]
     Route: 048
  7. LANSOPRAZOLE [Concomitant]
     Route: 048
  8. AMIODARONE HYDROCHLORIDE [Concomitant]
     Route: 048

REACTIONS (3)
  - ATRIAL FIBRILLATION [None]
  - CARDIAC VALVE DISEASE [None]
  - PULMONARY OEDEMA [None]
